FAERS Safety Report 9531013 (Version 1)
Quarter: 2013Q2

REPORT INFORMATION
  Report Type: Spontaneous
  Country: GB (occurrence: None)
  Receive Date: 20130426
  Receipt Date: 20130426
  Transmission Date: 20140414
  Serious: Yes (Life-Threatening, Hospitalization)
  Sender: FDA-Public Use
  Company Number: 2013-00082

PATIENT
  Age: 50 Year
  Sex: Male
  Weight: 60 kg

DRUGS (3)
  1. QUETIAPINE [Suspect]
     Indication: DEPRESSION
     Route: 048
  2. VENLAFAXINE [Suspect]
     Indication: DEPRESSION
     Route: 048
  3. AGOMELATINE [Suspect]
     Indication: DEPRESSION

REACTIONS (1)
  - Inappropriate antidiuretic hormone secretion [None]
